FAERS Safety Report 6227402-5 (Version None)
Quarter: 2009Q2

REPORT INFORMATION
  Report Type: 
  Country: None (occurrence: None)
  Receive Date: 20090610
  Receipt Date: 20090610
  Transmission Date: 20091009
  Serious: Yes (Other)
  Sender: FDA-Public Use
  Company Number: None

PATIENT
  Age: 76 Year
  Sex: Female
  Weight: 72 kg

DRUGS (5)
  1. LEVAQUIN [Suspect]
     Dosage: 500 MG/100 ML QD IV
     Route: 042
     Dates: start: 20080330, end: 20090402
  2. AMIODARONE [Concomitant]
  3. APOVEL [Concomitant]
  4. GLIPIZIDE [Concomitant]
  5. THYROID REPLACEMENT THERAPY [Concomitant]

REACTIONS (1)
  - HALLUCINATION [None]
